FAERS Safety Report 8534201-8 (Version None)
Quarter: 2012Q3

REPORT INFORMATION
  Report Type: 
  Country: None (occurrence: None)
  Receive Date: 20120724
  Receipt Date: 20120719
  Transmission Date: 20120928
  Serious: Yes (Death)
  Sender: FDA-Public Use
  Company Number: US-ACTELION-A-US2012-67786

PATIENT

DRUGS (8)
  1. HYDROCODONE [Concomitant]
  2. ALLOPURINOL [Concomitant]
  3. PAREGORICO [Concomitant]
  4. ROPINIROLE [Concomitant]
  5. REVATIO [Concomitant]
  6. VENTAVIS [Suspect]
     Indication: PULMONARY ARTERIAL HYPERTENSION
     Dosage: 2.5 ?G, UNK
     Route: 055
     Dates: start: 20070101, end: 20070501
  7. DEMEROL [Concomitant]
  8. HYDROCHLOROTHIAZIDE [Concomitant]

REACTIONS (1)
  - PULMONARY ARTERIAL HYPERTENSION [None]
